FAERS Safety Report 8982997 (Version 3)
Quarter: 2013Q1

REPORT INFORMATION
  Report Type: Report from Study
  Country: US (occurrence: US)
  Receive Date: 20121221
  Receipt Date: 20130326
  Transmission Date: 20140127
  Serious: Yes (Other)
  Sender: FDA-Public Use
  Company Number: US-US-EMD SERONO, INC.-7183184

PATIENT
  Age: 52 None
  Sex: Female

DRUGS (4)
  1. REBIF [Suspect]
     Indication: MULTIPLE SCLEROSIS
     Route: 058
     Dates: start: 20120713
  2. TOPAMAX [Suspect]
     Indication: MIGRAINE
  3. TOPAMAX [Suspect]
     Indication: CONVULSION
  4. KEPPRA XR [Concomitant]
     Indication: PRODUCT USED FOR UNKNOWN INDICATION

REACTIONS (9)
  - Nephrolithiasis [Recovering/Resolving]
  - Convulsion [Unknown]
  - Herpes zoster [Not Recovered/Not Resolved]
  - Post herpetic neuralgia [Unknown]
  - Decreased appetite [Unknown]
  - Gastrointestinal disorder [Unknown]
  - Large intestine polyp [Unknown]
  - Abdominal distension [Unknown]
  - Stress [Not Recovered/Not Resolved]
